FAERS Safety Report 6833614-X (Version None)
Quarter: 2010Q3

REPORT INFORMATION
  Report Type: 
  Country: None (occurrence: None)
  Receive Date: 20100712
  Receipt Date: 20070330
  Transmission Date: 20110219
  Serious: No
  Sender: FDA-Public Use
  Company Number: US-PFIZER INC-2007027004

PATIENT
  Sex: Female
  Weight: 58.97 kg

DRUGS (7)
  1. CHANTIX [Suspect]
     Indication: SMOKING CESSATION THERAPY
     Dates: start: 20070301, end: 20070329
  2. VYTORIN [Concomitant]
     Indication: BLOOD CHOLESTEROL INCREASED
  3. NEXIUM [Concomitant]
     Indication: GASTRIC DISORDER
  4. LOTREL [Concomitant]
     Indication: HYPERTENSION
  5. LORTAB [Concomitant]
  6. ADVAIR DISKUS 100/50 [Concomitant]
     Indication: DYSPNOEA
  7. DIURETICS [Concomitant]

REACTIONS (6)
  - ABDOMINAL DISCOMFORT [None]
  - ABNORMAL DREAMS [None]
  - DIARRHOEA [None]
  - POLLAKIURIA [None]
  - RENAL DISORDER [None]
  - WEIGHT DECREASED [None]
